FAERS Safety Report 14447697 (Version 1)
Quarter: 2018Q1

REPORT INFORMATION
  Report Type: Spontaneous
  Country: US (occurrence: US)
  Receive Date: 20180126
  Receipt Date: 20180126
  Transmission Date: 20180509
  Serious: No
  Sender: FDA-Public Use
  Company Number: US-ABBVIE-17K-163-2112580-00

PATIENT
  Age: 29 Year
  Sex: Male

DRUGS (1)
  1. HUMIRA [Suspect]
     Active Substance: ADALIMUMAB
     Indication: ARTHRITIS ENTEROPATHIC
     Route: 058

REACTIONS (2)
  - Off label use [Not Recovered/Not Resolved]
  - Arthritis enteropathic [Not Recovered/Not Resolved]

NARRATIVE: CASE EVENT DATE: 201709
